FAERS Safety Report 9721771 (Version 2)
Quarter: 2013Q4

REPORT INFORMATION
  Report Type: Report from Study
  Country: US (occurrence: US)
  Receive Date: 20131201
  Receipt Date: 20131201
  Transmission Date: 20140711
  Serious: No
  Sender: FDA-Public Use
  Company Number: US-ABBVIE-13P-163-1145897-00

PATIENT
  Sex: Male
  Weight: 113.5 kg

DRUGS (9)
  1. ANDROGEL [Suspect]
     Indication: BLOOD TESTOSTERONE DECREASED
     Dosage: TWO PUMPS PER DAY
     Dates: start: 20130816, end: 20130927
  2. ANDROGEL [Suspect]
     Dosage: 4 PUMPS
     Dates: start: 20130927
  3. SIMVASTATIN [Concomitant]
     Indication: BLOOD CHOLESTEROL INCREASED
  4. UNKNOWN BLOOD PRESSURE PILL [Concomitant]
     Indication: HYPERTENSION
  5. LOVAZA [Concomitant]
     Indication: BLOOD CHOLESTEROL INCREASED
  6. CYMBALTA [Concomitant]
     Indication: NEURALGIA
  7. GABAPENTIN [Concomitant]
     Indication: NEURALGIA
  8. VITAMIN B [Concomitant]
     Indication: VITAMIN SUPPLEMENTATION
  9. DIAZEPAM [Concomitant]
     Indication: SLEEP DISORDER THERAPY

REACTIONS (1)
  - Drug ineffective [Not Recovered/Not Resolved]
